FAERS Safety Report 21655984 (Version 1)
Quarter: 2022Q4

REPORT INFORMATION
  Report Type: Spontaneous
  Country: JP (occurrence: JP)
  Receive Date: 20221129
  Receipt Date: 20221129
  Transmission Date: 20230113
  Serious: Yes (Other)
  Sender: FDA-Public Use
  Company Number: JP-MALLINCKRODT-T202206285

PATIENT
  Age: 60 Year
  Sex: Female

DRUGS (1)
  1. AMITIZA [Suspect]
     Active Substance: LUBIPROSTONE
     Indication: Constipation
     Dosage: 48 MICROGRAM, DAILY
     Route: 048

REACTIONS (2)
  - Ascites [Unknown]
  - Abdominal pain [Recovered/Resolved]
